FAERS Safety Report 8398198-6 (Version None)
Quarter: 2012Q2

REPORT INFORMATION
  Report Type: 
  Country: None (occurrence: None)
  Receive Date: 20120531
  Receipt Date: 20120521
  Transmission Date: 20120825
  Serious: Yes (Other)
  Sender: FDA-Public Use
  Company Number: DE-NOVOPROD-352382

PATIENT
  Age: 64 Year
  Sex: Male
  Weight: 81 kg

DRUGS (2)
  1. BYETTA [Suspect]
     Indication: DIABETES MELLITUS
     Dosage: 2X5 UG - 2X10 UG/DAY
     Route: 058
     Dates: start: 20080516, end: 20091109
  2. VICTOZA [Suspect]
     Indication: DIABETES MELLITUS
     Dosage: 6 MG, QD
     Route: 058
     Dates: start: 20091207, end: 20101105

REACTIONS (1)
  - PANCREATIC CARCINOMA [None]
